FAERS Safety Report 19180813 (Version 2)
Quarter: 2021Q2

REPORT INFORMATION
  Report Type: Other
  Country: US (occurrence: US)
  Receive Date: 20210426
  Receipt Date: 20210504
  Transmission Date: 20210717
  Serious: Yes (Death)
  Sender: FDA-Public Use
  Company Number: US-ROCHE-2815191

PATIENT
  Sex: Female

DRUGS (2)
  1. HERCEPTIN [Suspect]
     Active Substance: TRASTUZUMAB
     Indication: OVARIAN CANCER
     Dosage: INFUSE 450MG INTRAVENOUSLY EVERY 21 DAYS
     Route: 042
  2. PERJETA [Suspect]
     Active Substance: PERTUZUMAB
     Indication: OVARIAN CANCER
     Dosage: INFUSE 420MG INTRAVENOUSLY EVERY 21 DAYS FOR FOR CYCLES 2 THROUGH 8
     Route: 042

REACTIONS (2)
  - Off label use [Unknown]
  - Death [Fatal]
